FAERS Safety Report 13761930 (Version 1)
Quarter: 2017Q3

REPORT INFORMATION
  Report Type: Spontaneous
  Country: FR (occurrence: FR)
  Receive Date: 20170718
  Receipt Date: 20170718
  Transmission Date: 20171127
  Serious: Yes (Other)
  Sender: FDA-Public Use
  Company Number: FR-ROCHE-1953901

PATIENT
  Age: 67 Year
  Sex: Female
  Weight: 80 kg

DRUGS (1)
  1. KADCYLA [Suspect]
     Active Substance: ADO-TRASTUZUMAB EMTANSINE
     Indication: BREAST CANCER METASTATIC
     Route: 042
     Dates: start: 20170614

REACTIONS (4)
  - Thrombosis [Unknown]
  - Erythema [Recovered/Resolved]
  - Injection site inflammation [Not Recovered/Not Resolved]
  - Extravasation [Recovering/Resolving]

NARRATIVE: CASE EVENT DATE: 20170614
